FAERS Safety Report 24133391 (Version 1)
Quarter: 2024Q3

REPORT INFORMATION
  Report Type: Report from Study
  Country: US (occurrence: None)
  Receive Date: 20240724
  Receipt Date: 20240724
  Transmission Date: 20241017
  Serious: Yes (Other)
  Sender: ASTRAZENECA
  Company Number: 2024A162967

PATIENT
  Sex: Female
  Weight: 93.7 kg

DRUGS (1)
  1. CALQUENCE [Suspect]
     Active Substance: ACALABRUTINIB
     Indication: Chronic lymphocytic leukaemia
     Route: 048
     Dates: start: 20210124

REACTIONS (7)
  - Ocular retrobulbar haemorrhage [Unknown]
  - Neovascular age-related macular degeneration [Unknown]
  - Fatigue [Unknown]
  - Arthritis [Unknown]
  - Amnesia [Unknown]
  - Retrobulbar oedema [Unknown]
  - Product dose omission issue [Unknown]
